FAERS Safety Report 5248627-1 (Version None)
Quarter: 2007Q1

REPORT INFORMATION
  Report Type: 
  Country: None (occurrence: None)
  Receive Date: 20070222
  Receipt Date: 20070206
  Transmission Date: 20070707
  Serious: Yes (Other)
  Sender: FDA-Public Use
  Company Number: HP200700014

PATIENT
  Age: 63 Year
  Sex: Female
  Weight: 68.5 kg

DRUGS (4)
  1. SALEX (SALICYLIC ACID 6%) CREAM, 6% [Suspect]
     Indication: DRY SKIN
     Dosage: QD, TOPICAL
     Route: 061
     Dates: start: 20050101
  2. SALEX (SALICYLIC ACID 6%) CREAM, 6% [Suspect]
     Indication: SKIN CHAPPED
     Dosage: QD, TOPICAL
     Route: 061
     Dates: start: 20050101
  3. LIPITOR [Suspect]
     Indication: HYPERCHOLESTEROLAEMIA
     Dosage: 10 MG, QD, ORAL
     Route: 048
     Dates: start: 20050101, end: 20070116
  4. NEURONTIN [Concomitant]

REACTIONS (6)
  - ALANINE AMINOTRANSFERASE INCREASED [None]
  - ASPARTATE AMINOTRANSFERASE INCREASED [None]
  - BLOOD ALKALINE PHOSPHATASE INCREASED [None]
  - CONDITION AGGRAVATED [None]
  - DRY SKIN [None]
  - SKIN CHAPPED [None]
